FAERS Safety Report 9758136 (Version 1)
Quarter: 2013Q4

REPORT INFORMATION
  Report Type: Spontaneous
  Country: US (occurrence: US)
  Receive Date: 20131216
  Receipt Date: 20131216
  Transmission Date: 20140711
  Serious: No
  Sender: FDA-Public Use
  Company Number: US-009507513-1312USA005207

PATIENT
  Age: 73 Year
  Sex: Female
  Weight: 57.6 kg

DRUGS (2)
  1. OXYTROL FOR WOMEN [Suspect]
     Indication: URINARY INCONTINENCE
     Dosage: 1 DF, UNKNOWN
     Route: 062
     Dates: start: 201310
  2. OXYTROL FOR WOMEN [Suspect]
     Indication: HYPERTONIC BLADDER

REACTIONS (3)
  - Dizziness [Unknown]
  - Application site erythema [Not Recovered/Not Resolved]
  - Application site pruritus [Not Recovered/Not Resolved]
